FAERS Safety Report 21848198 (Version 3)
Quarter: 2023Q1

REPORT INFORMATION
  Report Type: Spontaneous
  Country: US (occurrence: US)
  Receive Date: 20230111
  Receipt Date: 20230307
  Transmission Date: 20230418
  Serious: No
  Sender: FDA-Public Use
  Company Number: US-PFIZER INC-202300006188

PATIENT
  Age: 60 Year
  Sex: Female
  Weight: 95.25 kg

DRUGS (4)
  1. GENOTROPIN [Suspect]
     Active Substance: SOMATROPIN
     Indication: Hypothalamo-pituitary disorder
     Dosage: 0.4 MG (FOUR DAYS A WEEK)
  2. GENOTROPIN [Suspect]
     Active Substance: SOMATROPIN
     Dosage: 0.5 MG (THREE DAYS A WEEK)
  3. PROGESTERONE [Concomitant]
     Active Substance: PROGESTERONE
     Indication: Hypothalamo-pituitary disorder
     Dosage: 150 MG, 1X/DAY
  4. TESTOSTERONE [Concomitant]
     Active Substance: TESTOSTERONE
     Indication: Hypothalamo-pituitary disorder
     Dosage: UNK (DOSE UNKNOWN)

REACTIONS (2)
  - Device issue [Unknown]
  - Drug dose omission by device [Unknown]
